FAERS Safety Report 24450456 (Version 2)
Quarter: 2024Q4

REPORT INFORMATION
  Report Type: Spontaneous
  Country: IN (occurrence: IN)
  Receive Date: 20241017
  Receipt Date: 20241028
  Transmission Date: 20250114
  Serious: Yes (Hospitalization)
  Sender: ROCHE
  Company Number: IN-ROCHE-10000088631

PATIENT
  Age: 32 Year
  Sex: Female
  Weight: 74 kg

DRUGS (2)
  1. POLIVY [Suspect]
     Active Substance: POLATUZUMAB VEDOTIN-PIIQ
     Indication: B-cell lymphoma
     Route: 042
     Dates: start: 20240720
  2. POLIVY [Suspect]
     Active Substance: POLATUZUMAB VEDOTIN-PIIQ
     Route: 042

REACTIONS (8)
  - Off label use [Unknown]
  - Bacterial infection [Unknown]
  - Off label use [Unknown]
  - Dyspnoea [Unknown]
  - Pyrexia [Unknown]
  - C-reactive protein increased [Unknown]
  - Infection [Unknown]
  - Procalcitonin increased [Unknown]

NARRATIVE: CASE EVENT DATE: 20241001
